FAERS Safety Report 10866664 (Version 2)
Quarter: 2015Q1

REPORT INFORMATION
  Report Type: Spontaneous
  Country: US (occurrence: US)
  Receive Date: 20150225
  Receipt Date: 20150308
  Transmission Date: 20150721
  Serious: Yes (Hospitalization, Other)
  Sender: FDA-Public Use
  Company Number: US-AMGEN-USASL2015016846

PATIENT
  Age: 63 Year
  Sex: Female

DRUGS (1)
  1. ENBREL [Suspect]
     Active Substance: ETANERCEPT
     Indication: RHEUMATOID ARTHRITIS
     Dosage: 50 MG, QWK
     Route: 058
     Dates: start: 20070314

REACTIONS (7)
  - Fall [Recovered/Resolved]
  - Osteopenia [Not Recovered/Not Resolved]
  - Joint lock [Recovered/Resolved]
  - Osteoporosis [Not Recovered/Not Resolved]
  - Femur fracture [Recovered/Resolved]
  - Bone disorder [Recovered/Resolved]
  - Blood calcium decreased [Not Recovered/Not Resolved]

NARRATIVE: CASE EVENT DATE: 2013
